FAERS Safety Report 8962658 (Version 2)
Quarter: 2012Q4

REPORT INFORMATION
  Report Type: 
  Country: AU (occurrence: AU)
  Receive Date: 20121214
  Receipt Date: 20121224
  Transmission Date: 20130627
  Serious: Yes (Other)
  Sender: FDA-Public Use
  Company Number: PHHY2012AU109170

PATIENT
  Age: 30 None
  Sex: Female

DRUGS (9)
  1. CLOZARIL [Suspect]
     Dosage: 300 mg, Daily
     Route: 048
     Dates: start: 20100503, end: 20121127
  2. CLOZARIL [Suspect]
     Dosage: 350 mg
     Dates: end: 20121127
  3. SODIUM VALPROATE [Concomitant]
     Dosage: 700 mg, BID
  4. RISPERIDONE [Concomitant]
  5. PALIPERIDONE [Concomitant]
  6. OLANZAPINE [Concomitant]
  7. AMISULPRIDE [Concomitant]
  8. QUETIAPINE [Concomitant]
  9. ANTIPSYCHOTICS [Concomitant]

REACTIONS (7)
  - Schizophrenia [Unknown]
  - Hallucination, auditory [Unknown]
  - Convulsion [Unknown]
  - Agranulocytosis [Unknown]
  - Neutropenia [Recovered/Resolved]
  - Neutrophil count decreased [Recovered/Resolved]
  - White blood cell count decreased [Recovered/Resolved]
